FAERS Safety Report 5381278-7 (Version None)
Quarter: 2007Q3

REPORT INFORMATION
  Report Type: 
  Country: None (occurrence: None)
  Receive Date: 20070702
  Receipt Date: 20070316
  Transmission Date: 20080115
  Serious: Yes (Hospitalization, Other)
  Sender: FDA-Public Use
  Company Number: SPV1-2007-01042

PATIENT
  Age: 21 Year
  Sex: Female

DRUGS (1)
  1. PENTASA [Suspect]
     Indication: CROHN'S DISEASE
     Dosage: 750 MG 3X'S DAILY, ORAL
     Route: 048
     Dates: start: 20060701, end: 20070112

REACTIONS (1)
  - APLASIA PURE RED CELL [None]
